FAERS Safety Report 21558595 (Version 4)
Quarter: 2025Q3

REPORT INFORMATION
  Report Type: Report from Study
  Country: US (occurrence: US)
  Receive Date: 20221107
  Receipt Date: 20250728
  Transmission Date: 20251020
  Serious: Yes (Hospitalization, Other)
  Sender: TAKEDA
  Company Number: US-TAKEDA-2022TUS038993

PATIENT
  Sex: Male

DRUGS (4)
  1. TEDUGLUTIDE [Suspect]
     Active Substance: TEDUGLUTIDE
     Indication: Short-bowel syndrome
     Dosage: 0.057 MILLILITER, QD
     Dates: start: 20191104
  2. TEDUGLUTIDE [Suspect]
     Active Substance: TEDUGLUTIDE
     Dosage: UNK UNK, QD
  3. TEDUGLUTIDE [Suspect]
     Active Substance: TEDUGLUTIDE
  4. TEDUGLUTIDE [Suspect]
     Active Substance: TEDUGLUTIDE

REACTIONS (13)
  - Anal fistula [Unknown]
  - Gastrointestinal disorder [Unknown]
  - COVID-19 [Recovering/Resolving]
  - Ear infection [Unknown]
  - Rhinovirus infection [Unknown]
  - Appetite disorder [Unknown]
  - Gastrointestinal infection [Unknown]
  - Weight decreased [Unknown]
  - Cold urticaria [Unknown]
  - Liver function test abnormal [Unknown]
  - Multiple allergies [Unknown]
  - Vomiting [Unknown]
  - Abdominal pain upper [Unknown]
